FAERS Safety Report 6094861-0 (Version None)
Quarter: 2009Q1

REPORT INFORMATION
  Report Type: 
  Country: None (occurrence: None)
  Receive Date: 20090227
  Receipt Date: 20090219
  Transmission Date: 20090719
  Serious: Yes (Other)
  Sender: FDA-Public Use
  Company Number: BR-JNJFOC-20090205185

PATIENT
  Sex: Female
  Weight: 72 kg

DRUGS (1)
  1. ORTHO EVRA [Suspect]
     Indication: CONTRACEPTION
     Dosage: ETHINYL ESTRADIOL 0.6MG/ NORELGESTROMIN 6MG
     Route: 062

REACTIONS (5)
  - BLOOD PROLACTIN INCREASED [None]
  - CEREBRAL DISORDER [None]
  - GALACTORRHOEA [None]
  - PRODUCT QUALITY ISSUE [None]
  - WEIGHT DECREASED [None]
